FAERS Safety Report 4759141-1 (Version None)
Quarter: 2005Q3

REPORT INFORMATION
  Report Type: 
  Country: None (occurrence: None)
  Receive Date: 20050831
  Receipt Date: 20050816
  Transmission Date: 20060218
  Serious: Yes (Hospitalization)
  Sender: FDA-Public Use
  Company Number: 2005-01653

PATIENT
  Age: 67 Year
  Sex: Male
  Weight: 86 kg

DRUGS (16)
  1. VELCADE [Suspect]
     Indication: MULTIPLE MYELOMA
     Dosage: 2.40 MG, 2/WEEK, INTRAVENOUS
     Route: 042
     Dates: start: 20050718, end: 20050721
  2. MELPHALAN (MELPHALAN) VIAL [Suspect]
     Indication: MULTIPLE MYELOMA
     Dosage: 15.00 MG, ORAL
     Route: 048
     Dates: start: 20050718, end: 20050725
  3. PREDNISONE [Suspect]
     Indication: MULTIPLE MYELOMA
     Dosage: 100.00 MG, ORAL
     Route: 048
     Dates: start: 20050718, end: 20050725
  4. LOSARATAN POTASSIUM W/HYDROCHLOROTHIAZIDE (HYDROCHLOROTHIAZIDE, LOSART [Concomitant]
  5. PERCOCET [Concomitant]
  6. GASTRO (FAMOTIDINE) [Concomitant]
  7. ALLORIL (ALLOPURINOL) [Concomitant]
  8. DISOTHIAZIDE (HYDROCHLOROTHIAZIDE) [Concomitant]
  9. FUROSEMIDE [Concomitant]
  10. DEXAMETHASONE [Concomitant]
  11. RED BLOOD CELLS [Concomitant]
  12. CEFUROXIME [Concomitant]
  13. KYTRIL [Concomitant]
  14. PREDNISONE [Concomitant]
  15. LOSEC (OMEPRAZOLE) [Concomitant]
  16. TARIVID ORAL (OFLOXACIN) [Concomitant]

REACTIONS (6)
  - CAPILLARY LEAK SYNDROME [None]
  - HYPOKALAEMIA [None]
  - HYPONATRAEMIA [None]
  - MORGANELLA INFECTION [None]
  - RENAL FAILURE ACUTE [None]
  - SEPSIS [None]
